FAERS Safety Report 7820868-6 (Version None)
Quarter: 2011Q4

REPORT INFORMATION
  Report Type: 
  Country: None (occurrence: None)
  Receive Date: 20111018
  Receipt Date: 20111012
  Transmission Date: 20120403
  Serious: Yes (Hospitalization)
  Sender: FDA-Public Use
  Company Number: US-GLAXOSMITHKLINE-A0737988A

PATIENT
  Sex: Female

DRUGS (6)
  1. SPIRIVA [Concomitant]
  2. PREVACID [Concomitant]
  3. ADVAIR DISKUS 100/50 [Suspect]
     Indication: ASTHMA
     Dosage: 1PUFF TWICE PER DAY
     Route: 055
  4. FOSAMAX [Concomitant]
  5. PREDNISONE [Concomitant]
  6. LANOXIN [Suspect]
     Indication: ATRIAL FIBRILLATION

REACTIONS (5)
  - HEART RATE INCREASED [None]
  - OSTEOPOROSIS [None]
  - DYSPHONIA [None]
  - DYSPNOEA [None]
  - CANDIDIASIS [None]
